FAERS Safety Report 7435135-2 (Version None)
Quarter: 2011Q2

REPORT INFORMATION
  Report Type: 
  Country: None (occurrence: None)
  Receive Date: 20110425
  Receipt Date: 20110413
  Transmission Date: 20111010
  Serious: Yes (Hospitalization)
  Sender: FDA-Public Use
  Company Number: PHHY2011US31632

PATIENT
  Age: 48 Year
  Sex: Male

DRUGS (4)
  1. SYMBALTA [Concomitant]
  2. ELAVIL [Concomitant]
  3. NOROXIN [Concomitant]
  4. RECLAST [Suspect]
     Dosage: 5 MG, UNK
     Route: 042
     Dates: start: 20110330

REACTIONS (6)
  - MYALGIA [None]
  - ARTHRALGIA [None]
  - BLADDER DYSFUNCTION [None]
  - DYSPNOEA [None]
  - PAIN IN EXTREMITY [None]
  - BACK PAIN [None]
